FAERS Safety Report 4971143-9 (Version None)
Quarter: 2006Q1

REPORT INFORMATION
  Report Type: 
  Country: None (occurrence: None)
  Receive Date: 20060223
  Receipt Date: 20050302
  Transmission Date: 20060701
  Serious: Yes (Other)
  Sender: FDA-Public Use
  Company Number: HQWYE793503MAR05

PATIENT
  Age: 39 Year
  Sex: Male

DRUGS (7)
  1. EFFEXOR [Suspect]
     Dosage: 75 MG, ORAL
     Route: 048
     Dates: start: 20050202
  2. WELLBUTRIN XL [Suspect]
     Indication: ADJUSTMENT DISORDER
     Dosage: 300 MG 1X PER 1 DAY, ORAL
     Route: 048
     Dates: start: 20041124, end: 20050210
  3. ZONISAMIDE [Concomitant]
  4. COZAAR [Concomitant]
  5. LIPITOR [Concomitant]
  6. GLUCOTROL [Concomitant]
  7. CIALIS [Concomitant]

REACTIONS (1)
  - CONVULSION [None]
